FAERS Safety Report 24580136 (Version 3)
Quarter: 2024Q4

REPORT INFORMATION
  Report Type: Report from Study
  Country: US (occurrence: US)
  Receive Date: 20241105
  Receipt Date: 20241219
  Transmission Date: 20250114
  Serious: Yes (Death)
  Sender: AMGEN
  Company Number: US-AMGEN-USASP2024217495

PATIENT
  Sex: Male

DRUGS (2)
  1. RAVICTI [Suspect]
     Active Substance: GLYCEROL PHENYLBUTYRATE
     Indication: Urea cycle disorder
     Dosage: 4.6 MILLILITER, TID WITH FOOD
     Route: 048
     Dates: start: 20130325
  2. RAVICTI [Suspect]
     Active Substance: GLYCEROL PHENYLBUTYRATE
     Indication: Argininosuccinate lyase deficiency
     Dosage: 4.8 MILLILITER, TID  (1.1 G/ML, 5.28 G)
     Route: 048
     Dates: start: 201609

REACTIONS (1)
  - Death [Fatal]
